FAERS Safety Report 23778047 (Version 1)
Quarter: 2024Q2

REPORT INFORMATION
  Report Type: Spontaneous
  Country: US (occurrence: None)
  Receive Date: 20240423
  Receipt Date: 20240423
  Transmission Date: 20240715
  Serious: Yes (unspecified)
  Sender: FDA-Public Use
  Company Number: None

PATIENT
  Age: 71 Year
  Sex: Female
  Weight: 55.35 kg

DRUGS (7)
  1. CIPRO [Suspect]
     Active Substance: CIPROFLOXACIN HYDROCHLORIDE
     Indication: Colitis
     Dosage: FREQUENCY : EVERY 12 HOURS?
     Route: 048
  2. ATENOLOL [Concomitant]
  3. LIPITOR [Concomitant]
     Active Substance: ATORVASTATIN CALCIUM
  4. low dose aspirin [Concomitant]
  5. BIOTIN [Concomitant]
  6. vitamin D [Concomitant]
  7. multivitamin [Concomitant]

REACTIONS (5)
  - Joint swelling [None]
  - Arthralgia [None]
  - Tendonitis [None]
  - Tenosynovitis [None]
  - Tendon rupture [None]

NARRATIVE: CASE EVENT DATE: 20240318
